FAERS Safety Report 5570051-2 (Version None)
Quarter: 2007Q4

REPORT INFORMATION
  Report Type: 
  Country: None (occurrence: None)
  Receive Date: 20071220
  Receipt Date: 20071210
  Transmission Date: 20080405
  Serious: Yes (Other)
  Sender: FDA-Public Use
  Company Number: GB-PFIZER INC-2007105580

PATIENT
  Age: 45 Year
  Sex: Female
  Weight: 72 kg

DRUGS (2)
  1. CHANTIX [Suspect]
     Indication: SMOKING CESSATION THERAPY
     Route: 048
  2. MIRENA [Concomitant]
     Indication: CONTRACEPTION
     Route: 015

REACTIONS (3)
  - BURNING SENSATION [None]
  - MUSCLE TWITCHING [None]
  - NEUROPATHY PERIPHERAL [None]
